FAERS Safety Report 10952858 (Version 1)
Quarter: 2015Q1

REPORT INFORMATION
  Report Type: Spontaneous
  Country: US (occurrence: None)
  Receive Date: 20150324
  Receipt Date: 20150324
  Transmission Date: 20150721
  Serious: Yes (Other)
  Sender: FDA-Public Use
  Company Number: None

PATIENT
  Age: 36 Year
  Sex: Female
  Weight: 104.33 kg

DRUGS (1)
  1. MIRENA [Suspect]
     Active Substance: LEVONORGESTREL
     Indication: CONTRACEPTION
     Dates: start: 20141121, end: 20150323

REACTIONS (8)
  - Weight increased [None]
  - Loss of libido [None]
  - Mood swings [None]
  - Nipple pain [None]
  - Breast discharge [None]
  - Breast tenderness [None]
  - Urticaria [None]
  - Headache [None]

NARRATIVE: CASE EVENT DATE: 20150224
